FAERS Safety Report 16881404 (Version 1)
Quarter: 2019Q4

REPORT INFORMATION
  Report Type: Other
  Country: SK (occurrence: SK)
  Receive Date: 20191003
  Receipt Date: 20191003
  Transmission Date: 20200122
  Serious: Yes (Death)
  Sender: FDA-Public Use
  Company Number: SK-TOLMAR, INC.-19SK000330

PATIENT
  Age: 75 Year
  Sex: Male
  Weight: 82 kg

DRUGS (10)
  1. ELIGARD [Suspect]
     Active Substance: LEUPROLIDE ACETATE
     Indication: PROSTATE CANCER
     Dosage: 22.5 MILLIGRAM, Q3MONTHS
     Route: 058
     Dates: start: 20180315, end: 20180823
  2. BETALOC [METOPROLOL SUCCINATE] [Concomitant]
     Indication: MYOCARDIAL ISCHAEMIA
     Dosage: UNK
     Dates: start: 20160316
  3. STADAMET [Concomitant]
     Active Substance: METFORMIN HYDROCHLORIDE
     Indication: DIABETES MELLITUS
     Dosage: UNK
     Dates: start: 20160122
  4. ELIQUIS [Concomitant]
     Active Substance: APIXABAN
     Indication: MYOCARDIAL ISCHAEMIA
     Dosage: UNK
     Dates: start: 20160415
  5. TELMARK [Concomitant]
     Active Substance: TELMISARTAN
     Indication: HYPERTENSION
     Dosage: UNK
     Dates: start: 20160316
  6. ASOLFENA [Concomitant]
     Indication: LOWER URINARY TRACT SYMPTOMS
     Dosage: UNK
     Dates: start: 20170208
  7. ENZALUTAMIDE [Suspect]
     Active Substance: ENZALUTAMIDE
     Indication: PROSTATE CANCER
     Dosage: 160 MILLIGRAM, QD
     Route: 048
     Dates: start: 20180315, end: 20181121
  8. TORVACARD [Concomitant]
     Active Substance: ATORVASTATIN CALCIUM
     Indication: HYPERCHOLESTEROLAEMIA
     Dosage: UNK
     Dates: start: 20140206
  9. DIGOXIN. [Concomitant]
     Active Substance: DIGOXIN
     Indication: MYOCARDIAL ISCHAEMIA
     Dosage: UNK
     Dates: start: 20140206
  10. ENELBIN [NAFTIDROFURYL OXALATE] [Concomitant]
     Indication: MICROANGIOPATHY
     Dosage: UNK
     Dates: start: 20170215

REACTIONS (1)
  - Myocardial infarction [Fatal]

NARRATIVE: CASE EVENT DATE: 20190103
